FAERS Safety Report 5119387-X (Version None)
Quarter: 2006Q4

REPORT INFORMATION
  Report Type: 
  Country: None (occurrence: None)
  Receive Date: 20061003
  Receipt Date: 20060927
  Transmission Date: 20070319
  Serious: Yes (Death, Other)
  Sender: FDA-Public Use
  Company Number: JP-AVENTIS-200612991JP

PATIENT
  Age: 56 Year
  Sex: Female

DRUGS (7)
  1. TAXOTERE [Suspect]
     Indication: OVARIAN CANCER
     Route: 041
  2. CARBOPLATIN [Concomitant]
     Indication: OVARIAN CANCER
  3. CYCLOPHOSPHAMIDE [Concomitant]
     Indication: OVARIAN CANCER
  4. EPIRUBICIN [Concomitant]
     Indication: OVARIAN CANCER
  5. CISPLATIN [Concomitant]
     Indication: OVARIAN CANCER
  6. PACLITAXEL [Concomitant]
     Indication: OVARIAN CANCER
  7. ETOPOSIDE [Concomitant]
     Indication: OVARIAN CANCER

REACTIONS (7)
  - ACUTE MYELOID LEUKAEMIA [None]
  - ASCITES [None]
  - BONE MARROW TRANSPLANT [None]
  - CARBOHYDRATE ANTIGEN 125 INCREASED [None]
  - GRAFT VERSUS HOST DISEASE [None]
  - METASTASES TO PANCREAS [None]
  - OVARIAN CANCER [None]
